FAERS Safety Report 5027751-2 (Version None)
Quarter: 2006Q2

REPORT INFORMATION
  Report Type: 
  Country: None (occurrence: None)
  Receive Date: 20060609
  Receipt Date: 20060530
  Transmission Date: 20061013
  Serious: Yes (Hospitalization)
  Sender: FDA-Public Use
  Company Number: 2006048418

PATIENT
  Age: 56 Year
  Sex: Male
  Weight: 46.8 kg

DRUGS (9)
  1. MEDROL [Suspect]
     Indication: GLOMERULONEPHRITIS MEMBRANOUS
     Dosage: 12 TABLETS, ORAL
     Route: 048
     Dates: start: 20051215, end: 20060129
  2. FAMOTIDINE [Suspect]
     Indication: GLOMERULONEPHRITIS MEMBRANOUS
     Dosage: 20 MG (1 IN 1 D), ORAL
     Route: 048
     Dates: start: 20051215, end: 20060129
  3. SYNTHEPEN (PHENETICILLIN POTASSIUM) [Suspect]
     Indication: GLOMERULONEPHRITIS MEMBRANOUS
     Dosage: 800000 UNITS, ORAL
     Route: 048
     Dates: start: 20051215, end: 20060126
  4. GLYCYRON (AMINOACETIC ACID, DL-METHIONINE, GLYCYRRHIZIC ACID) [Suspect]
     Indication: GLOMERULONEPHRITIS MEMBRANOUS
     Dosage: 3 TABLETS (3 IN 1 D), ORAL
     Route: 048
     Dates: start: 20051215, end: 20060129
  5. PERSANTIN [Suspect]
     Indication: GLOMERULONEPHRITIS MEMBRANOUS
     Dosage: 150 MG (50  MG, 3 IN 1 D), ORAL
     Route: 048
     Dates: start: 20051215, end: 20060129
  6. ASPARA K (ASPARTATE POTASSIUM) [Suspect]
     Indication: GLOMERULONEPHRITIS MEMBRANOUS
     Dosage: 1800 MG (600 MG, 3 IN 1 D), ORAL
     Route: 048
     Dates: start: 20051215, end: 20060129
  7. GASLON (IRSOGLADINE MALEATE) [Concomitant]
  8. ENALAPRIL MALEATE [Concomitant]
  9. BREDININ (MIZORIBINE) [Concomitant]

REACTIONS (3)
  - ANURIA [None]
  - ORAL INTAKE REDUCED [None]
  - TOXIC EPIDERMAL NECROLYSIS [None]
